FAERS Safety Report 5834629-0 (Version None)
Quarter: 2008Q3

REPORT INFORMATION
  Report Type: 
  Country: None (occurrence: None)
  Receive Date: 20080805
  Receipt Date: 20080728
  Transmission Date: 20090109
  Serious: Yes (Other)
  Sender: FDA-Public Use
  Company Number: US-ASTRAZENECA-2006UW23256

PATIENT
  Age: 18 Year
  Sex: Female
  Weight: 99.8 kg

DRUGS (5)
  1. SEROQUEL [Suspect]
     Indication: DEPRESSION
     Route: 048
     Dates: start: 20040101, end: 20050101
  2. SEROQUEL [Suspect]
     Indication: POST-TRAUMATIC STRESS DISORDER
     Route: 048
     Dates: start: 20040101, end: 20050101
  3. RISPERDAL [Concomitant]
  4. LONAMIN [Concomitant]
     Dates: start: 20040101
  5. MERICLIA [Concomitant]
     Dates: start: 20050101

REACTIONS (3)
  - CHOLECYSTECTOMY [None]
  - DIABETES MELLITUS [None]
  - GASTRIC DISORDER [None]
